FAERS Safety Report 9862181 (Version 1)
Quarter: 2014Q1

REPORT INFORMATION
  Report Type: Spontaneous
  Country: BR (occurrence: BR)
  Receive Date: 20140203
  Receipt Date: 20140203
  Transmission Date: 20141002
  Serious: Yes (Hospitalization, Other)
  Sender: FDA-Public Use
  Company Number: BR-SA-2014SA009945

PATIENT
  Sex: Female
  Weight: 74 kg

DRUGS (3)
  1. LANTUS SOLOSTAR [Suspect]
     Indication: TYPE 1 DIABETES MELLITUS
     Route: 058
     Dates: start: 201305
  2. HUMALOG [Suspect]
     Indication: TYPE 1 DIABETES MELLITUS
     Dosage: DOSAGE: AS PER THE BLOOD GLUCOSE LEVELS
     Route: 058
     Dates: start: 20121121
  3. SOLOSTAR [Concomitant]
     Indication: DEVICE THERAPY
     Dates: start: 201305

REACTIONS (17)
  - Varicella [Recovered/Resolved]
  - Diabetes mellitus [Not Recovered/Not Resolved]
  - Blood glucose decreased [Recovered/Resolved]
  - Blood glucose increased [Recovered/Resolved]
  - Arthropod bite [Recovered/Resolved]
  - Local swelling [Recovered/Resolved]
  - Weight increased [Not Recovered/Not Resolved]
  - Eye disorder [Unknown]
  - Pollakiuria [Unknown]
  - Mood altered [Unknown]
  - Blood glucose fluctuation [Not Recovered/Not Resolved]
  - Injection site pain [Not Recovered/Not Resolved]
  - Blood glucose decreased [Not Recovered/Not Resolved]
  - Thirst [Unknown]
  - Asthenia [Not Recovered/Not Resolved]
  - Pallor [Not Recovered/Not Resolved]
  - Fatigue [Not Recovered/Not Resolved]
